FAERS Safety Report 12557112 (Version 1)
Quarter: 2016Q3

REPORT INFORMATION
  Report Type: Spontaneous
  Country: GB (occurrence: GB)
  Receive Date: 20160714
  Receipt Date: 20160714
  Transmission Date: 20161109
  Serious: Yes (Congenital Anomaly)
  Sender: FDA-Public Use
  Company Number: GB-UNICHEM LABORATORIES LIMITED-UCM201607-000150

PATIENT
  Sex: Male

DRUGS (1)
  1. DIVALPROEX SODIUM. [Suspect]
     Active Substance: DIVALPROEX SODIUM

REACTIONS (9)
  - Torticollis [Unknown]
  - Otitis media [Unknown]
  - Foetal exposure during pregnancy [Unknown]
  - Inguinal hernia [Unknown]
  - Hypospadias [Unknown]
  - Learning disorder [Unknown]
  - Hooded prepuce [Unknown]
  - Foetal anticonvulsant syndrome [Unknown]
  - Coloboma [Unknown]
